FAERS Safety Report 12285194 (Version 1)
Quarter: 2016Q2

REPORT INFORMATION
  Report Type: Spontaneous
  Country: US (occurrence: US)
  Receive Date: 20160420
  Receipt Date: 20160420
  Transmission Date: 20160815
  Serious: No
  Sender: FDA-Public Use
  Company Number: US-TEVA-621936USA

PATIENT
  Age: 90 Year
  Sex: Male
  Weight: 74.46 kg

DRUGS (1)
  1. TAMSULOSIN [Suspect]
     Active Substance: TAMSULOSIN
     Indication: BENIGN PROSTATIC HYPERPLASIA
     Route: 065
     Dates: start: 20151209, end: 20151222

REACTIONS (4)
  - Dizziness [Recovered/Resolved]
  - Therapeutic response unexpected [Unknown]
  - Palpitations [Recovered/Resolved]
  - Somnolence [Unknown]

NARRATIVE: CASE EVENT DATE: 20151209
